FAERS Safety Report 25723555 (Version 1)
Quarter: 2025Q3

REPORT INFORMATION
  Report Type: Spontaneous
  Country: US (occurrence: US)
  Receive Date: 20250825
  Receipt Date: 20250825
  Transmission Date: 20251021
  Serious: No
  Sender: ANI
  Company Number: US-ANIPHARMA-2025-US-006350

PATIENT
  Age: 50 Year
  Sex: Female
  Weight: 79.38 kg

DRUGS (10)
  1. CORTICOTROPIN [Suspect]
     Active Substance: CORTICOTROPIN
     Indication: Pulmonary sarcoidosis
     Route: 058
     Dates: start: 202501
  2. ESTRADIOL [Concomitant]
     Active Substance: ESTRADIOL
  3. METOPROLOL [Concomitant]
     Active Substance: METOPROLOL
  4. TYLENOL [Concomitant]
     Active Substance: ACETAMINOPHEN
  5. ELIQUIS [Concomitant]
     Active Substance: APIXABAN
  6. ALBUTEROL [Concomitant]
     Active Substance: ALBUTEROL
  7. BREZTRI [Concomitant]
     Active Substance: BUDESONIDE\FORMOTEROL\GLYCOPYRROLATE
  8. DUONEB [Concomitant]
     Active Substance: ALBUTEROL SULFATE\IPRATROPIUM BROMIDE
  9. LISINOPRIL [Concomitant]
     Active Substance: LISINOPRIL
  10. CYCLOBENZAPRINE [Concomitant]
     Active Substance: CYCLOBENZAPRINE

REACTIONS (6)
  - Injection site pruritus [Unknown]
  - Periorbital swelling [Unknown]
  - Pain in extremity [Unknown]
  - Insomnia [Not Recovered/Not Resolved]
  - Product dose omission issue [Unknown]
  - Contraindicated product administered [Not Recovered/Not Resolved]

NARRATIVE: CASE EVENT DATE: 20250101
